FAERS Safety Report 15001103 (Version 2)
Quarter: 2018Q2

REPORT INFORMATION
  Report Type: Spontaneous
  Country: BR (occurrence: BR)
  Receive Date: 20180612
  Receipt Date: 20180619
  Transmission Date: 20180711
  Serious: Yes (Death, Hospitalization, Other)
  Sender: FDA-Public Use
  Company Number: BR-ROCHE-2138051

PATIENT
  Age: 47 Year
  Sex: Male

DRUGS (18)
  1. ACTILYSE [Suspect]
     Active Substance: ALTEPLASE
     Indication: ISCHAEMIC STROKE
     Dosage: (50MG, 8MG IN BOLUS AND 73MG)
     Route: 042
     Dates: start: 20171027, end: 20171027
  2. FUROSEMIDE. [Concomitant]
     Active Substance: FUROSEMIDE
  3. CAPTOPRIL. [Concomitant]
     Active Substance: CAPTOPRIL
  4. MIDAZOLAM [Concomitant]
     Active Substance: MIDAZOLAM HYDROCHLORIDE
  5. NPH INSULIN [Concomitant]
     Active Substance: INSULIN BEEF
  6. LINEZOLIDA [Concomitant]
  7. LINEZOLIDA [Concomitant]
  8. ATENOLOL. [Concomitant]
     Active Substance: ATENOLOL
  9. DIPIRONA [Concomitant]
     Active Substance: METAMIZOLE
  10. INSULIN REGULAR [Concomitant]
     Active Substance: INSULIN NOS
  11. OMEPRAZOLE. [Concomitant]
     Active Substance: OMEPRAZOLE
  12. PROPOFOL. [Concomitant]
     Active Substance: PROPOFOL
  13. ATORVASTATIN [Concomitant]
     Active Substance: ATORVASTATIN
  14. CLONIDINA [Concomitant]
  15. AMLODIPIN [Concomitant]
     Active Substance: AMLODIPINE BESYLATE
  16. MEROPENEM. [Concomitant]
     Active Substance: MEROPENEM
  17. DAPTOMICINA [Concomitant]
     Active Substance: DAPTOMYCIN
  18. AMFOTERICINA B [Concomitant]

REACTIONS (9)
  - Pulmonary alveolar haemorrhage [Unknown]
  - Cerebrovascular accident [Unknown]
  - Death [Fatal]
  - Haemoptysis [Unknown]
  - Tachycardia [Unknown]
  - Contraindicated product administered [Unknown]
  - Catheter site haemorrhage [Unknown]
  - Oxygen saturation decreased [Unknown]
  - Hypoxia [Unknown]

NARRATIVE: CASE EVENT DATE: 20171027
